FAERS Safety Report 7878963-1 (Version None)
Quarter: 2011Q4

REPORT INFORMATION
  Report Type: 
  Country: None (occurrence: None)
  Receive Date: 20111101
  Receipt Date: 20111019
  Transmission Date: 20120403
  Serious: Yes (Hospitalization)
  Sender: FDA-Public Use
  Company Number: PHHY2011IT92063

PATIENT
  Sex: Female

DRUGS (4)
  1. TRILAFON [Concomitant]
     Dosage: 8 MG,
     Route: 048
  2. DELORAZEPAM [Concomitant]
     Indication: ANXIETY
     Route: 048
  3. CLOZAPINE [Suspect]
     Indication: SCHIZOPHRENIA
     Dates: start: 20110901, end: 20110910
  4. TRILAFON [Concomitant]
     Dosage: 4 MG,
     Route: 048

REACTIONS (7)
  - LEFT ATRIAL DILATATION [None]
  - TACHYCARDIA [None]
  - MITRAL VALVE INCOMPETENCE [None]
  - ASTHENIA [None]
  - PYREXIA [None]
  - ABDOMINAL PAIN UPPER [None]
  - HYPERHIDROSIS [None]
